FAERS Safety Report 24283028 (Version 1)
Quarter: 2024Q3

REPORT INFORMATION
  Report Type: Spontaneous
  Country: GB (occurrence: GB)
  Receive Date: 20240904
  Receipt Date: 20240904
  Transmission Date: 20241016
  Serious: Yes (Life-Threatening, Hospitalization)
  Sender: ORGANON
  Company Number: GB-MLMSERVICE-20240826-PI173353-00040-1

PATIENT
  Sex: Female

DRUGS (1)
  1. ALENDRONATE SODIUM [Suspect]
     Active Substance: ALENDRONATE SODIUM
     Dosage: 70 MILLIGRAM, QW
     Route: 048

REACTIONS (4)
  - Foreign body aspiration [Recovered/Resolved]
  - Lower respiratory tract inflammation [Recovered/Resolved]
  - Chemical burn of respiratory tract [Recovered/Resolved with Sequelae]
  - Obstructive airways disorder [Recovered/Resolved]
